FAERS Safety Report 18024044 (Version 1)
Quarter: 2020Q3

REPORT INFORMATION
  Report Type: Spontaneous
  Country: US (occurrence: US)
  Receive Date: 20200714
  Receipt Date: 20200714
  Transmission Date: 20201103
  Serious: No
  Sender: FDA-Public Use
  Company Number: None

PATIENT
  Age: 30 Year
  Sex: Female
  Weight: 170 kg

DRUGS (6)
  1. ENOXAPARIN 40MG SUBQ Q12H [Concomitant]
     Dates: start: 20200710
  2. ASCORBIC ACID 2000MG QDAY [Concomitant]
     Dates: start: 20200712
  3. REMDESIVIR. [Suspect]
     Active Substance: REMDESIVIR
     Indication: COVID-19
     Route: 041
     Dates: start: 20200711
  4. DEXAMETHASONE 6MG PO QDAY [Concomitant]
     Dates: start: 20200711
  5. CODEINE?GUAIFENESIN 10?100MG Q4H PRN COUGH [Concomitant]
     Dates: start: 20200711, end: 20200713
  6. ZINC SULFATE 220MG [Concomitant]
     Dates: start: 20200712

REACTIONS (3)
  - Nausea [None]
  - Abdominal pain upper [None]
  - Vomiting [None]

NARRATIVE: CASE EVENT DATE: 20200714
